FAERS Safety Report 4485491-2 (Version None)
Quarter: 2004Q4

REPORT INFORMATION
  Report Type: 
  Country: None (occurrence: None)
  Receive Date: 20041026
  Receipt Date: 20041012
  Transmission Date: 20050328
  Serious: Yes (Other)
  Sender: FDA-Public Use
  Company Number: FRWYE104912OCT04

PATIENT
  Age: 72 Year
  Sex: Male

DRUGS (4)
  1. ENBREL [Suspect]
     Indication: RHEUMATOID ARTHRITIS
     Route: 058
     Dates: start: 20040101, end: 20041012
  2. HYDROQUINONE [Concomitant]
     Dosage: UNKNOWN
  3. FLUDEX [Concomitant]
     Dosage: UNKNOWN
  4. IRBESARTAN [Concomitant]
     Dosage: UNKNOWN

REACTIONS (1)
  - CONGESTIVE CARDIOMYOPATHY [None]
